FAERS Safety Report 7471521-2 (Version None)
Quarter: 2011Q2

REPORT INFORMATION
  Report Type: 
  Country: None (occurrence: None)
  Receive Date: 20110502
  Receipt Date: 20110418
  Transmission Date: 20111010
  Serious: Yes (Death)
  Sender: FDA-Public Use
  Company Number: 1000020566

PATIENT
  Age: 56 Year
  Sex: Female

DRUGS (2)
  1. LINEZOLID [Suspect]
  2. CITALOPRAM HYDROBROMIDE [Suspect]

REACTIONS (2)
  - SEROTONIN SYNDROME [None]
  - TREMOR [None]
